FAERS Safety Report 19386095 (Version 1)
Quarter: 2021Q2

REPORT INFORMATION
  Report Type: Report from Study
  Country: US (occurrence: US)
  Receive Date: 20210607
  Receipt Date: 20210607
  Transmission Date: 20210717
  Serious: No
  Sender: FDA-Public Use
  Company Number: US-SUNOVION-2021SUN001998

PATIENT
  Age: 69 Year
  Sex: Female

DRUGS (3)
  1. KYNMOBI [Suspect]
     Active Substance: APOMORPHINE HYDROCHLORIDE
     Indication: PARKINSON^S DISEASE
     Dosage: 15 MG
     Route: 060
     Dates: start: 20210526, end: 20210526
  2. KYNMOBI [Suspect]
     Active Substance: APOMORPHINE HYDROCHLORIDE
     Dosage: 10 MG
     Route: 060
     Dates: start: 20210525, end: 20210525
  3. KYNMOBI [Suspect]
     Active Substance: APOMORPHINE HYDROCHLORIDE
     Dosage: 10 MG
     Route: 060
     Dates: start: 20210521, end: 20210521

REACTIONS (6)
  - Product taste abnormal [Unknown]
  - Somnolence [Unknown]
  - Heart rate increased [Unknown]
  - Yawning [Unknown]
  - Product packaging difficult to open [Unknown]
  - Fatigue [Unknown]

NARRATIVE: CASE EVENT DATE: 20210521
